FAERS Safety Report 21853816 (Version 1)
Quarter: 2023Q1

REPORT INFORMATION
  Report Type: Report from Study
  Country: US (occurrence: US)
  Receive Date: 20230112
  Receipt Date: 20230112
  Transmission Date: 20230418
  Serious: No
  Sender: FDA-Public Use
  Company Number: US-ABBVIE-4234865

PATIENT
  Sex: Male

DRUGS (2)
  1. HUMIRA [Suspect]
     Active Substance: ADALIMUMAB
     Indication: Psoriasis
     Route: 058
     Dates: start: 202110, end: 202203
  2. HUMIRA [Suspect]
     Active Substance: ADALIMUMAB
     Dosage: STARTED IN JUNE/JULY,
     Route: 058
     Dates: start: 202206

REACTIONS (1)
  - Drug ineffective [Not Recovered/Not Resolved]
